FAERS Safety Report 10057261 (Version 1)
Quarter: 2014Q2

REPORT INFORMATION
  Report Type: Spontaneous
  Country: US (occurrence: US)
  Receive Date: 20140403
  Receipt Date: 20140403
  Transmission Date: 20141212
  Serious: Yes (Other)
  Sender: FDA-Public Use
  Company Number: US-ASTRAZENECA-2014SE21562

PATIENT
  Sex: 0

DRUGS (2)
  1. SEROQUEL XR [Suspect]
     Indication: DEPRESSION
     Route: 048
  2. MULTIPLE MEDICATIONS [Concomitant]

REACTIONS (2)
  - Cerebrovascular accident [Unknown]
  - Akathisia [Recovered/Resolved]
